FAERS Safety Report 12042719 (Version 2)
Quarter: 2016Q1

REPORT INFORMATION
  Report Type: Spontaneous
  Country: JP (occurrence: JP)
  Receive Date: 20160208
  Receipt Date: 20160222
  Transmission Date: 20160526
  Serious: Yes (Hospitalization, Other)
  Sender: FDA-Public Use
  Company Number: JP-PFIZER INC-2016067787

PATIENT
  Age: 60 Year
  Sex: Male
  Weight: 63 kg

DRUGS (4)
  1. AMOXAN [Suspect]
     Active Substance: AMOXAPINE
     Dosage: 50 MG, UNK
     Dates: start: 20160116
  2. EFFEXOR [Suspect]
     Active Substance: VENLAFAXINE HYDROCHLORIDE
     Indication: DEPRESSION
     Dosage: 37.5 MG, DAILY
     Route: 048
     Dates: start: 20160125, end: 20160201
  3. AMOXAN [Suspect]
     Active Substance: AMOXAPINE
     Dosage: 75 MG, UNK
  4. BROTIZOLAM [Suspect]
     Active Substance: BROTIZOLAM
     Dosage: UNK

REACTIONS (3)
  - Dementia with Lewy bodies [Unknown]
  - Delirium [Recovered/Resolved]
  - Frontotemporal dementia [Unknown]

NARRATIVE: CASE EVENT DATE: 20160201
